FAERS Safety Report 26098697 (Version 1)
Quarter: 2025Q4

REPORT INFORMATION
  Report Type: Spontaneous
  Country: GB (occurrence: None)
  Receive Date: 20251127
  Receipt Date: 20251127
  Transmission Date: 20260118
  Serious: Yes (Disabling, Other)
  Sender: ORGANON
  Company Number: None

PATIENT

DRUGS (5)
  1. FINASTERIDE [Suspect]
     Active Substance: FINASTERIDE
     Dosage: UNK
  2. Atorvastatin, Amlodipine, Doxazosine, Progablin [Concomitant]
     Dosage: UNK
  3. Atorvastatin, Amlodipine, Doxazosine, Progablin [Concomitant]
     Dosage: UNK
  4. Atorvastatin, Amlodipine, Doxazosine, Progablin [Concomitant]
     Dosage: UNK
  5. Atorvastatin, Amlodipine, Doxazosine, Progablin [Concomitant]
     Dosage: UNK

REACTIONS (10)
  - Depressed mood [Not Recovered/Not Resolved]
  - Depression [Unknown]
  - Erectile dysfunction [Unknown]
  - Fatigue [Unknown]
  - Asthenia [Unknown]
  - Anxiety [Unknown]
  - Acne [Unknown]
  - Breast swelling [Unknown]
  - Libido decreased [Unknown]
  - Pruritus [Unknown]
